FAERS Safety Report 9530248 (Version 3)
Quarter: 2013Q4

REPORT INFORMATION
  Report Type: Report from Study
  Country: JP (occurrence: JP)
  Receive Date: 20130917
  Receipt Date: 20131129
  Transmission Date: 20140711
  Serious: Yes (Death)
  Sender: FDA-Public Use
  Company Number: JP-ROCHE-1273871

PATIENT
  Age: 90 Year
  Sex: Female
  Weight: 51 kg

DRUGS (9)
  1. METHOXY POLYETHYLENE GLYCOL-EPOETIN BETA [Suspect]
     Indication: NEPHROGENIC ANAEMIA
     Route: 058
     Dates: start: 20111124, end: 20120215
  2. WARFARIN POTASSIUM [Concomitant]
     Route: 048
     Dates: end: 20120229
  3. KREMEZIN [Concomitant]
     Indication: GLOMERULONEPHRITIS CHRONIC
     Route: 048
     Dates: end: 20120229
  4. LASIX [Concomitant]
     Route: 048
     Dates: end: 20120229
  5. ARICEPT [Concomitant]
     Route: 048
     Dates: end: 20120229
  6. GASTER D [Concomitant]
     Route: 048
     Dates: end: 20120229
  7. PLAVIX [Concomitant]
     Route: 048
     Dates: end: 20120229
  8. IRBESARTAN [Concomitant]
     Route: 048
     Dates: end: 20120229
  9. HALCION [Concomitant]
     Route: 048
     Dates: end: 20120229

REACTIONS (2)
  - Pneumonia aspiration [Fatal]
  - Hypertension [Unknown]
